FAERS Safety Report 14366101 (Version 12)
Quarter: 2018Q4

REPORT INFORMATION
  Report Type: Spontaneous
  Country: US (occurrence: US)
  Receive Date: 20180109
  Receipt Date: 20181130
  Transmission Date: 20190204
  Serious: Yes (Other)
  Sender: FDA-Public Use
  Company Number: US-TESARO, INC-US-2018TSO00024

PATIENT
  Age: 74 Year
  Sex: Female
  Weight: 72.56 kg

DRUGS (7)
  1. ZEJULA [Suspect]
     Active Substance: NIRAPARIB
     Dosage: 300 MG, QD
     Route: 048
  2. ZEJULA [Suspect]
     Active Substance: NIRAPARIB
     Dosage: 300 MG, HS
     Route: 048
     Dates: start: 20171227, end: 20181119
  3. ZEJULA [Suspect]
     Active Substance: NIRAPARIB
     Indication: METASTASES TO LUNG
     Dosage: 300 MG, QD
     Route: 048
     Dates: start: 20180126
  4. ZEJULA [Suspect]
     Active Substance: NIRAPARIB
     Indication: OVARIAN CANCER
     Dosage: 300 MG, QD
     Route: 048
     Dates: start: 20171228, end: 20171230
  5. ZEJULA [Suspect]
     Active Substance: NIRAPARIB
     Dosage: 300 MG, QD
     Route: 048
  6. ZEJULA [Suspect]
     Active Substance: NIRAPARIB
     Dosage: 300 MG, QD
     Route: 048
  7. ZEJULA [Suspect]
     Active Substance: NIRAPARIB
     Dosage: 300 MG, QD
     Route: 048

REACTIONS (15)
  - Skin infection [Unknown]
  - Product dose omission [Recovered/Resolved]
  - Haematochezia [Recovering/Resolving]
  - Animal bite [Unknown]
  - Chest X-ray abnormal [Unknown]
  - Faeces discoloured [Recovering/Resolving]
  - Eastern Cooperative Oncology Group performance status worsened [Unknown]
  - Drug ineffective [Unknown]
  - Neuropathy peripheral [Not Recovered/Not Resolved]
  - Constipation [Recovered/Resolved]
  - Impaired driving ability [Not Recovered/Not Resolved]
  - Fatigue [Unknown]
  - Insomnia [Recovered/Resolved]
  - Emotional distress [Recovered/Resolved]
  - Blood pressure increased [Recovering/Resolving]

NARRATIVE: CASE EVENT DATE: 20171231
